FAERS Safety Report 18412903 (Version 1)
Quarter: 2020Q4

REPORT INFORMATION
  Report Type: Spontaneous
  Country: US (occurrence: US)
  Receive Date: 20201021
  Receipt Date: 20201021
  Transmission Date: 20210114
  Serious: Yes (Hospitalization, Other)
  Sender: FDA-Public Use
  Company Number: US-TEVA-2020-US-1840701

PATIENT
  Sex: Male

DRUGS (7)
  1. DILAUDID [Suspect]
     Active Substance: HYDROMORPHONE HYDROCHLORIDE
     Route: 042
  2. OXY IR [Suspect]
     Active Substance: OXYCODONE HYDROCHLORIDE
     Dosage: FORM OF ADMIN: IMMEDIATE-RELEASE TABLET
     Route: 065
  3. HYDROCODONE AND ACETAMINOPHEN [Suspect]
     Active Substance: ACETAMINOPHEN\HYDROCODONE
     Route: 065
  4. ACETAMINOPHEN W/OXYCODONE [Suspect]
     Active Substance: ACETAMINOPHEN\OXYCODONE HYDROCHLORIDE
     Route: 065
  5. TRAMADOL. [Suspect]
     Active Substance: TRAMADOL
     Dosage: FORM OF ADMIN: EXTENDED-RELEASE TABLETS
     Route: 065
  6. OXYCONTIN [Suspect]
     Active Substance: OXYCODONE HYDROCHLORIDE
     Indication: PAIN
     Route: 065
  7. PERCOCET [Suspect]
     Active Substance: ACETAMINOPHEN\OXYCODONE HYDROCHLORIDE
     Route: 065

REACTIONS (7)
  - Depression [Unknown]
  - Emotional disorder [Unknown]
  - Withdrawal syndrome [Unknown]
  - Drug dependence [Unknown]
  - Suicidal behaviour [Unknown]
  - Substance use disorder [Unknown]
  - Drug tolerance [Unknown]
